FAERS Safety Report 7358694-7 (Version None)
Quarter: 2011Q1

REPORT INFORMATION
  Report Type: 
  Country: None (occurrence: None)
  Receive Date: 20110317
  Receipt Date: 20110310
  Transmission Date: 20110831
  Serious: Yes (Hospitalization)
  Sender: FDA-Public Use
  Company Number: A0744969A

PATIENT
  Age: 51 Year
  Sex: Male
  Weight: 165.9 kg

DRUGS (13)
  1. ACTOS [Concomitant]
     Dates: start: 20030814, end: 20051118
  2. METFORMIN HCL [Concomitant]
     Dates: start: 20011004, end: 20080110
  3. AMARYL [Concomitant]
     Dosage: 4MG PER DAY
     Route: 048
  4. HYDROCHLOROTHIAZIDE [Concomitant]
     Dosage: 25MG PER DAY
     Route: 048
  5. AVANDIA [Suspect]
     Dosage: 8MG PER DAY
     Route: 048
     Dates: start: 20050225, end: 20070101
  6. K-DUR [Concomitant]
     Dosage: 10MEQ PER DAY
     Route: 048
  7. PLAVIX [Concomitant]
     Dosage: 75MG PER DAY
     Route: 048
  8. ASPIRIN [Concomitant]
     Dosage: 325MG PER DAY
     Route: 048
  9. TOPROL-XL [Concomitant]
     Dosage: 50MG PER DAY
     Route: 048
  10. VASOTEC [Concomitant]
     Dosage: 10MG PER DAY
     Route: 048
  11. FOLTX [Concomitant]
     Dosage: 1TAB PER DAY
     Route: 048
  12. NIACIN [Concomitant]
     Dosage: 500MG PER DAY
     Route: 048
  13. DILTIAZEM [Concomitant]
     Dosage: 360MG PER DAY
     Route: 048

REACTIONS (2)
  - MYOCARDIAL INFARCTION [None]
  - CARDIAC FAILURE CONGESTIVE [None]
